FAERS Safety Report 4965731-3 (Version None)
Quarter: 2006Q2

REPORT INFORMATION
  Report Type: 
  Country: None (occurrence: None)
  Receive Date: 20060407
  Receipt Date: 20060328
  Transmission Date: 20061013
  Serious: Yes (Hospitalization, Other)
  Sender: FDA-Public Use
  Company Number: US-JNJFOC-20060204031

PATIENT
  Sex: Female
  Weight: 66.68 kg

DRUGS (12)
  1. REMICADE [Suspect]
     Route: 042
  2. REMICADE [Suspect]
     Dosage: 3 VIALS
     Route: 042
  3. REMICADE [Suspect]
     Indication: CROHN'S DISEASE
     Route: 042
  4. 5-ASA [Concomitant]
     Indication: CROHN'S DISEASE
  5. AZATHIOPRINE [Concomitant]
     Indication: CROHN'S DISEASE
  6. PREDNISONE [Concomitant]
     Indication: CROHN'S DISEASE
     Dosage: ^TAPER^
  7. THIAMINE [Concomitant]
  8. INDERAL LA [Concomitant]
  9. PROZAC [Concomitant]
  10. LIPITOR [Concomitant]
  11. PENTASA [Concomitant]
  12. OMEPRAZOLE [Concomitant]

REACTIONS (11)
  - BLOOD GLUCOSE INCREASED [None]
  - BLOOD MAGNESIUM DECREASED [None]
  - BLOOD POTASSIUM DECREASED [None]
  - DIARRHOEA [None]
  - DYSPNOEA [None]
  - HAEMOGLOBIN INCREASED [None]
  - NAUSEA [None]
  - PLATELET COUNT INCREASED [None]
  - URTICARIA [None]
  - VOMITING [None]
  - WHITE BLOOD CELL COUNT INCREASED [None]
